FAERS Safety Report 9805419 (Version 1)
Quarter: 2014Q1

REPORT INFORMATION
  Report Type: Report from Study
  Country: CA (occurrence: CA)
  Receive Date: 20140109
  Receipt Date: 20140109
  Transmission Date: 20141002
  Serious: Yes (Other)
  Sender: FDA-Public Use
  Company Number: CA-JNJFOC-20140101387

PATIENT
  Age: 49 Year
  Sex: Male
  Weight: 88 kg

DRUGS (14)
  1. REMICADE [Suspect]
     Indication: CROHN^S DISEASE
     Route: 042
     Dates: start: 20030903
  2. FERROUS FUMARATE [Concomitant]
     Route: 048
  3. CLONAZEPAM [Concomitant]
     Route: 048
  4. NOZINAN [Concomitant]
     Dosage: ONCE EVER DAY AFTER NOON
     Route: 065
  5. CODEINE [Concomitant]
     Route: 048
  6. METHOTREXATE [Concomitant]
     Route: 048
  7. ELAVIL [Concomitant]
     Dosage: EVERY NIGHT AT BED TIME
     Route: 048
  8. NAPROSYN [Concomitant]
     Dosage: 3 TO 4 TIMES A DAY
     Route: 048
  9. TECTA [Concomitant]
     Route: 048
     Dates: start: 20131220
  10. SEROQUEL [Concomitant]
     Route: 048
  11. DIDROCAL [Concomitant]
     Route: 048
  12. BENADRYL [Concomitant]
     Indication: PREMEDICATION
     Route: 042
  13. ACETAMINOPHEN [Concomitant]
     Indication: PREMEDICATION
     Route: 048
  14. HYDROCORTISONE [Concomitant]
     Indication: PREMEDICATION
     Route: 042

REACTIONS (3)
  - Loss of consciousness [Recovered/Resolved]
  - Confusional state [Recovered/Resolved]
  - Fatigue [Recovered/Resolved]
